FAERS Safety Report 20061536 (Version 5)
Quarter: 2022Q1

REPORT INFORMATION
  Report Type: Other
  Country: US (occurrence: None)
  Receive Date: 20211112
  Receipt Date: 20220331
  Transmission Date: 20220423
  Serious: Yes (Hospitalization)
  Sender: FDA-Public Use
  Company Number: US-ROCHE-2952775

PATIENT
  Age: 57 Year
  Sex: Female

DRUGS (24)
  1. OCRELIZUMAB [Suspect]
     Active Substance: OCRELIZUMAB
     Indication: Multiple sclerosis
     Dosage: DATE OF SECOND ADMINISTRATION ON 02/FEB/2021
     Route: 065
     Dates: start: 20210120
  2. OCRELIZUMAB [Suspect]
     Active Substance: OCRELIZUMAB
     Route: 065
     Dates: start: 20210803
  3. LASIX [Concomitant]
     Active Substance: FUROSEMIDE
  4. MONTELUKAST [Concomitant]
     Active Substance: MONTELUKAST SODIUM
  5. OXYCODONE [Concomitant]
     Active Substance: OXYCODONE
  6. TRILEPTAL [Concomitant]
     Active Substance: OXCARBAZEPINE
  7. CLONIDINE [Concomitant]
     Active Substance: CLONIDINE
  8. GABAPENTIN [Concomitant]
     Active Substance: GABAPENTIN
     Dates: start: 2020
  9. BACLOFEN [Concomitant]
     Active Substance: BACLOFEN
     Dates: start: 20201002
  10. HYDROXYZINE [Concomitant]
     Active Substance: HYDROXYZINE HYDROCHLORIDE
  11. MELATONIN [Concomitant]
     Active Substance: MELATONIN
  12. QUETIAPINE [Concomitant]
     Active Substance: QUETIAPINE
  13. ALBUTEROL [Concomitant]
     Active Substance: ALBUTEROL
  14. CODEINE [Concomitant]
     Active Substance: CODEINE
     Dates: start: 20210924
  15. BARICITINIB [Concomitant]
     Active Substance: BARICITINIB
     Dates: start: 20210924, end: 20210928
  16. LORAZEPAM [Concomitant]
     Active Substance: LORAZEPAM
     Dates: start: 202109
  17. ACETAMINOPHEN [Concomitant]
     Active Substance: ACETAMINOPHEN
     Dates: start: 202109
  18. ATORVASTATIN [Concomitant]
     Active Substance: ATORVASTATIN
     Dates: start: 202109
  19. DEXAMETHASONE [Concomitant]
     Active Substance: DEXAMETHASONE
     Dates: start: 202109
  20. ENOXAPARIN [Concomitant]
     Active Substance: ENOXAPARIN
     Dates: start: 202109
  21. FAMOTIDINE [Concomitant]
     Active Substance: FAMOTIDINE
     Dates: start: 202109
  22. ONDANSETRON [Concomitant]
     Active Substance: ONDANSETRON
     Dates: start: 202109
  23. OXCARBAZEPINE [Concomitant]
     Active Substance: OXCARBAZEPINE
     Dates: start: 202109
  24. AZITHROMYCIN [Concomitant]
     Active Substance: AZITHROMYCIN
     Dates: start: 202109

REACTIONS (1)
  - COVID-19 [Recovered/Resolved with Sequelae]

NARRATIVE: CASE EVENT DATE: 20210910
